FAERS Safety Report 10435803 (Version 2)
Quarter: 2017Q4

REPORT INFORMATION
  Report Type: Spontaneous
  Country: US (occurrence: US)
  Receive Date: 20140908
  Receipt Date: 20171026
  Transmission Date: 20180320
  Serious: Yes (Other)
  Sender: FDA-Public Use
  Company Number: US-JNJFOC-20140824711

PATIENT

DRUGS (4)
  1. ETOPOSIDE. [Suspect]
     Active Substance: ETOPOSIDE
     Indication: THYROID CANCER
     Route: 065
  2. DOXORUBICIN [Suspect]
     Active Substance: DOXORUBICIN
     Indication: THYROID CANCER
     Route: 065
  3. CISPLATIN. [Suspect]
     Active Substance: CISPLATIN
     Indication: THYROID CANCER
     Dosage: 100 MG/M2 IN SOME PATIENTS AND 60 MG/M2 IN SOME
     Route: 065
  4. PACLITAXEL. [Suspect]
     Active Substance: PACLITAXEL
     Indication: THYROID CANCER
     Route: 065

REACTIONS (8)
  - Product use in unapproved indication [Unknown]
  - Dry mouth [Unknown]
  - Dysphonia [Unknown]
  - Dermatitis [Unknown]
  - Mucosal inflammation [Unknown]
  - Fatigue [Unknown]
  - Dysphagia [Unknown]
  - Toxicity to various agents [Unknown]
